FAERS Safety Report 6603972-X (Version None)
Quarter: 2010Q1

REPORT INFORMATION
  Report Type: 
  Country: None (occurrence: None)
  Receive Date: 20100226
  Receipt Date: 20090420
  Transmission Date: 20100710
  Serious: No
  Sender: FDA-Public Use
  Company Number: A0776188A

PATIENT
  Age: 18 Year
  Sex: Female
  Weight: 52.7 kg

DRUGS (3)
  1. LAMICTAL CD [Suspect]
     Indication: BIPOLAR DISORDER
     Dosage: 25MG PER DAY
     Route: 048
     Dates: start: 20090325, end: 20090328
  2. CONCERTA [Concomitant]
  3. BIRTH CONTROL [Concomitant]

REACTIONS (3)
  - HYPERSENSITIVITY [None]
  - PRURITUS [None]
  - URTICARIA [None]
